FAERS Safety Report 9005397 (Version 1)
Quarter: 2013Q1

REPORT INFORMATION
  Report Type: Spontaneous
  Country: JP (occurrence: JP)
  Receive Date: 20130108
  Receipt Date: 20130108
  Transmission Date: 20140127
  Serious: Yes (Other)
  Sender: FDA-Public Use
  Company Number: JP-PFIZER INC-2013007560

PATIENT
  Sex: Male

DRUGS (5)
  1. LYRICA [Suspect]
     Indication: BACK PAIN
     Dosage: 75 MG, 1X/DAY
     Route: 048
  2. LYRICA [Suspect]
     Dosage: 25 MG, 2X/DAY
     Route: 048
  3. LYRICA [Suspect]
     Dosage: 1 TABLET IN THE MORNING AND 2 TABLETS AT NIGHT
     Route: 048
  4. TRAMCET [Concomitant]
  5. OPALMON [Concomitant]

REACTIONS (9)
  - Hypoacusis [Unknown]
  - Eye disorder [Unknown]
  - Extraocular muscle disorder [Unknown]
  - Vision blurred [Unknown]
  - Visual acuity reduced [Unknown]
  - Somnolence [Recovered/Resolved]
  - Photophobia [Unknown]
  - Eye pain [Unknown]
  - Tinnitus [Unknown]
